FAERS Safety Report 7897207-8 (Version None)
Quarter: 2011Q4

REPORT INFORMATION
  Report Type: 
  Country: None (occurrence: None)
  Receive Date: 20111104
  Receipt Date: 20111104
  Transmission Date: 20120403
  Serious: No
  Sender: FDA-Public Use
  Company Number: None

PATIENT

DRUGS (3)
  1. BIO-IDENTICAL HORMONE CREAM [Suspect]
  2. TENORMIN [Concomitant]
  3. ESTRATEST [Suspect]

REACTIONS (3)
  - OSTEOARTHRITIS [None]
  - MUSCULOSKELETAL PAIN [None]
  - MALAISE [None]
